FAERS Safety Report 9350350 (Version 1)
Quarter: 2013Q2

REPORT INFORMATION
  Report Type: Report from Study
  Country: US (occurrence: US)
  Receive Date: 20130617
  Receipt Date: 20130617
  Transmission Date: 20140414
  Serious: Yes (Hospitalization)
  Sender: FDA-Public Use
  Company Number: US-JNJFOC-20130605292

PATIENT
  Sex: Female

DRUGS (2)
  1. REMICADE [Suspect]
     Indication: ARTHRITIS
     Route: 042
     Dates: start: 20121213
  2. REMICADE [Suspect]
     Indication: ARTHRITIS
     Route: 042
     Dates: start: 20130308

REACTIONS (7)
  - Arthritis [Not Recovered/Not Resolved]
  - Nerve compression [Unknown]
  - Drug ineffective [Not Recovered/Not Resolved]
  - Pyrexia [Recovered/Resolved]
  - Urticaria [Not Recovered/Not Resolved]
  - Skin exfoliation [Not Recovered/Not Resolved]
  - Cough [Recovered/Resolved]
